FAERS Safety Report 8965644 (Version 2)
Quarter: 2013Q1

REPORT INFORMATION
  Report Type: Spontaneous
  Country: CA (occurrence: None)
  Receive Date: 20121203
  Receipt Date: 20130207
  Transmission Date: 20140127
  Serious: Yes (Other)
  Sender: FDA-Public Use
  Company Number: 2012034048

PATIENT
  Age: 74 Year
  Sex: Male

DRUGS (5)
  1. PRIVIGEN (IMMUNE GLOBULIN INTRAVENOUS (HUMAN) 10% LIQUID) [Suspect]
     Indication: CLOSTRIDIUM DIFFICILE COLITIS
     Dosage: (NOT OTHERWISE SPECIFIED)
     Route: 042
     Dates: start: 20120613, end: 20120613
  2. VANCOMYCIN (VANCOMYCIN) [Concomitant]
  3. FLAGYL (METRONIDAZOLE) [Concomitant]
  4. TAZOCIN (PIP/TAZO) [Concomitant]
  5. HEPARIN (HEPARIN) [Concomitant]

REACTIONS (11)
  - Drug ineffective for unapproved indication [None]
  - Chills [None]
  - Dyspnoea [None]
  - Tachycardia [None]
  - Vomiting [None]
  - Crying [None]
  - Erythema [None]
  - Erythema [None]
  - Hypersensitivity [None]
  - Emotional disorder [None]
  - Pseudomonal bacteraemia [None]
